FAERS Safety Report 12071154 (Version 1)
Quarter: 2016Q1

REPORT INFORMATION
  Report Type: Spontaneous
  Country: US (occurrence: US)
  Receive Date: 20160211
  Receipt Date: 20160211
  Transmission Date: 20160526
  Serious: Yes (Hospitalization)
  Sender: FDA-Public Use
  Company Number: US-THE RITEDOSE CORPORATION-2015RIT000012

PATIENT
  Age: 10 Year
  Sex: Female

DRUGS (2)
  1. ALBUTEROL SULFATE INHALATION SOLUTION [Suspect]
     Active Substance: ALBUTEROL SULFATE
     Indication: WHEEZING
  2. CORTICOSTEROIDS [Concomitant]
     Active Substance: CORTICOSTEROID NOS

REACTIONS (2)
  - Familial periodic paralysis [Recovered/Resolved]
  - Hypokalaemia [Recovered/Resolved]
